FAERS Safety Report 24437720 (Version 5)
Quarter: 2025Q1

REPORT INFORMATION
  Report Type: Spontaneous
  Country: US (occurrence: US)
  Receive Date: 20241015
  Receipt Date: 20250115
  Transmission Date: 20250409
  Serious: Yes (Other)
  Sender: BLUEPRINT MEDICINES
  Company Number: US-Blueprint Medicines Corporation-5013

PATIENT
  Age: 56 Year
  Sex: Female

DRUGS (4)
  1. AYVAKIT [Suspect]
     Active Substance: AVAPRITINIB
     Indication: Gastrointestinal stromal tumour
     Route: 065
     Dates: start: 20240730
  2. AYVAKIT [Suspect]
     Active Substance: AVAPRITINIB
     Indication: Malignant connective tissue neoplasm
     Route: 065
     Dates: start: 20240730
  3. AYVAKIT [Suspect]
     Active Substance: AVAPRITINIB
     Indication: Soft tissue sarcoma
     Route: 048
     Dates: start: 20240730
  4. AYVAKIT [Suspect]
     Active Substance: AVAPRITINIB
     Route: 065
     Dates: start: 20240730

REACTIONS (12)
  - Optic neuritis [Unknown]
  - Lacrimation increased [Unknown]
  - Periorbital swelling [Unknown]
  - Eye disorder [Unknown]
  - Ocular icterus [Unknown]
  - Hair colour changes [Unknown]
  - Eye swelling [Unknown]
  - Alopecia [Unknown]
  - Eye discharge [Unknown]
  - Cough [Unknown]
  - Headache [Unknown]
  - Rash [Unknown]
